FAERS Safety Report 21245183 (Version 2)
Quarter: 2022Q3

REPORT INFORMATION
  Report Type: Other
  Country: TW (occurrence: None)
  Receive Date: 20220823
  Receipt Date: 20220905
  Transmission Date: 20221027
  Serious: Yes (Hospitalization)
  Sender: FDA-Public Use
  Company Number: TW-ROCHE-3163831

PATIENT
  Age: 55 Year
  Sex: Female

DRUGS (1)
  1. AVASTIN [Suspect]
     Active Substance: BEVACIZUMAB
     Indication: Ovarian cancer
     Route: 065
     Dates: start: 20220217, end: 20220716

REACTIONS (1)
  - Ileus [Not Recovered/Not Resolved]

NARRATIVE: CASE EVENT DATE: 20220701
